FAERS Safety Report 10652412 (Version 1)
Quarter: 2014Q4

REPORT INFORMATION
  Report Type: Spontaneous
  Country: US (occurrence: None)
  Receive Date: 20141211
  Receipt Date: 20141211
  Transmission Date: 20150529
  Serious: Yes (Hospitalization)
  Sender: FDA-Public Use
  Company Number: 2014HINLIT1040

PATIENT
  Age: 19 Year
  Sex: Male

DRUGS (3)
  1. LEVETIRACETAM. [Suspect]
     Active Substance: LEVETIRACETAM
     Indication: PARTIAL SEIZURES
     Route: 042
  2. LORAZEPAM (LORAZEPAM) [Concomitant]
     Active Substance: LORAZEPAM
  3. OXCARBAZEPINE (OXCARBAZEPINE) [Concomitant]
     Active Substance: OXCARBAZEPINE

REACTIONS (2)
  - Blood creatine phosphokinase increased [None]
  - Renal impairment [None]
